FAERS Safety Report 6717604-3 (Version None)
Quarter: 2010Q2

REPORT INFORMATION
  Report Type: 
  Country: None (occurrence: None)
  Receive Date: 20100506
  Receipt Date: 20100506
  Transmission Date: 20101027
  Serious: No
  Sender: FDA-Public Use
  Company Number: None

PATIENT
  Sex: Male

DRUGS (1)
  1. TOP IVOMEC POUR ON (IVERMECTIN) [Suspect]
     Indication: DRUG ADMINISTRATION ERROR
     Dosage: UNK TOP
     Route: 061
     Dates: start: 20100415

REACTIONS (5)
  - ACCIDENTAL EXPOSURE [None]
  - COUGH [None]
  - DYSPNOEA [None]
  - HEADACHE [None]
  - RESPIRATORY TRACT INFECTION [None]
